FAERS Safety Report 10311262 (Version 1)
Quarter: 2014Q3

REPORT INFORMATION
  Report Type: Spontaneous
  Country: US (occurrence: US)
  Receive Date: 20140717
  Receipt Date: 20140717
  Transmission Date: 20150326
  Serious: Yes (Other)
  Sender: FDA-Public Use
  Company Number: CHPA2014US009508

PATIENT
  Age: 55 Year
  Sex: Male

DRUGS (4)
  1. NICOTINE TRANSDERMAL SYSTEM STEP 1 [Suspect]
     Active Substance: NICOTINE
     Indication: OFF LABEL USE
  2. NICOTINE TRANSDERMAL SYSTEM STEP 1 [Suspect]
     Active Substance: NICOTINE
     Indication: INCORRECT DRUG ADMINISTRATION DURATION
  3. COUMADINE [Concomitant]
     Active Substance: WARFARIN SODIUM
  4. NICOTINE TRANSDERMAL SYSTEM STEP 1 [Suspect]
     Active Substance: NICOTINE
     Indication: SMOKING CESSATION THERAPY
     Dosage: 1 DF, QD
     Route: 062
     Dates: start: 20140711, end: 201407

REACTIONS (4)
  - Dry skin [Not Recovered/Not Resolved]
  - Abnormal dreams [Recovered/Resolved]
  - Erythema [Unknown]
  - Rash [Not Recovered/Not Resolved]

NARRATIVE: CASE EVENT DATE: 20140711
